FAERS Safety Report 8991017 (Version 1)
Quarter: 2012Q4

REPORT INFORMATION
  Report Type: Spontaneous
  Country: IT (occurrence: None)
  Receive Date: 20121220
  Receipt Date: 20121220
  Transmission Date: 20130627
  Serious: Yes (Other)
  Sender: FDA-Public Use
  Company Number: 1534780

PATIENT
  Age: 11 Year
  Sex: Male

DRUGS (8)
  1. CARBOPLATIN [Suspect]
     Indication: MEDULLOBLASTOMA
  2. METHOTREXATE [Suspect]
     Indication: MEDULLOBLASTOMA
  3. ETOPOSIDE [Suspect]
     Indication: MEDULLOBLASTOMA
  4. CYCLOPHOSPHAMIDE [Suspect]
     Indication: MEDULLOBLASTOMA
  5. VINCRISTINE [Suspect]
     Indication: MEDULLOBLASTOMA
  6. THIOTEPA [Suspect]
     Indication: MEDULLOBLASTOMA
  7. UNSPECIFIED INGREDIENT [Suspect]
     Dosage: 7.2 Gy (UNKNOWN) Other
     Route: 050
  8. CORTICOSTEROIDS [Concomitant]

REACTIONS (7)
  - Refractory cytopenia with multilineage dysplasia [None]
  - Tuberculosis [None]
  - Pyogenic sterile arthritis pyoderma gangrenosum and acne syndrome [None]
  - Aspergillosis [None]
  - Bone marrow transplant rejection [None]
  - Cytogenetic abnormality [None]
  - Drug interaction [None]
